FAERS Safety Report 4345065-0 (Version None)
Quarter: 2004Q1

REPORT INFORMATION
  Report Type: 
  Country: None (occurrence: None)
  Receive Date: 20040325
  Receipt Date: 20040115
  Transmission Date: 20041129
  Serious: No
  Sender: FDA-Public Use
  Company Number: USA040156715

PATIENT
  Age: 60 Year
  Sex: Female

DRUGS (1)
  1. FORTEO [Suspect]
     Dates: start: 20031222, end: 20040112

REACTIONS (4)
  - HERPES SIMPLEX [None]
  - LIP PAIN [None]
  - SWELLING FACE [None]
  - VIRAL INFECTION [None]
